FAERS Safety Report 4303133-3 (Version None)
Quarter: 2004Q1

REPORT INFORMATION
  Report Type: 
  Country: None (occurrence: None)
  Receive Date: 20040224
  Receipt Date: 20040218
  Transmission Date: 20041129
  Serious: Yes (Hospitalization)
  Sender: FDA-Public Use
  Company Number: JP-ROCHE-359283

PATIENT
  Age: 37 Year
  Sex: Female

DRUGS (3)
  1. TAMIFLU [Suspect]
     Dosage: REGIMEN REPORTED AS ^75MG X 2^.
     Route: 048
     Dates: start: 20040209, end: 20040211
  2. OZEX [Concomitant]
     Route: 048
  3. VOLTAREN [Concomitant]

REACTIONS (2)
  - BACK PAIN [None]
  - BLOOD CREATININE INCREASED [None]
